FAERS Safety Report 5474906-9 (Version None)
Quarter: 2007Q3

REPORT INFORMATION
  Report Type: 
  Country: None (occurrence: None)
  Receive Date: 20070831
  Receipt Date: 20070406
  Transmission Date: 20080115
  Serious: No
  Sender: FDA-Public Use
  Company Number: 239619

PATIENT
  Age: 49 Year
  Sex: Female

DRUGS (2)
  1. LUCENTIS [Suspect]
     Indication: MACULAR DEGENERATION
     Dosage: INTRAVITREAL
     Dates: start: 20070403
  2. ONE-A-DAY (VITAMINS AND MINERALS) [Concomitant]

REACTIONS (1)
  - DYSPHONIA [None]
